FAERS Safety Report 4977063-8 (Version None)
Quarter: 2006Q2

REPORT INFORMATION
  Report Type: 
  Country: None (occurrence: None)
  Receive Date: 20060419
  Receipt Date: 20050825
  Transmission Date: 20061013
  Serious: Yes (Hospitalization, Other)
  Sender: FDA-Public Use
  Company Number: US-BRISTOL-MYERS SQUIBB COMPANY-13090246

PATIENT
  Age: 31 Year
  Sex: Female

DRUGS (5)
  1. BLINDED: ARIPIPRAZOLE [Suspect]
     Indication: BIPOLAR I DISORDER
     Route: 048
     Dates: start: 20050801, end: 20050811
  2. BLINDED: ARIPIPRAZOLE [Suspect]
     Indication: DEPRESSION
     Route: 048
     Dates: start: 20050801, end: 20050811
  3. BLINDED: PLACEBO [Suspect]
  4. ATIVAN [Concomitant]
     Dates: start: 20050808, end: 20050813
  5. EFFEXOR XR [Concomitant]
     Route: 048

REACTIONS (3)
  - DEPRESSION [None]
  - DRUG INEFFECTIVE [None]
  - SUICIDAL IDEATION [None]
